FAERS Safety Report 5318505-8 (Version None)
Quarter: 2007Q2

REPORT INFORMATION
  Report Type: 
  Country: None (occurrence: None)
  Receive Date: 20070501
  Receipt Date: 20070417
  Transmission Date: 20071010
  Serious: Yes (Hospitalization)
  Sender: FDA-Public Use
  Company Number: PAR_01511_2007

PATIENT
  Sex: Male
  Weight: 95 kg

DRUGS (2)
  1. CAPOTEN [Suspect]
     Indication: HYPERTENSION
     Dosage: 50 MG QD ORAL
     Route: 048
     Dates: start: 20061001
  2. NIFEDIPINE [Concomitant]

REACTIONS (3)
  - HYPERTENSION [None]
  - INFUSION RELATED REACTION [None]
  - ISCHAEMIA [None]
